FAERS Safety Report 20837538 (Version 2)
Quarter: 2022Q2

REPORT INFORMATION
  Report Type: Report from Study
  Country: US (occurrence: US)
  Receive Date: 20220517
  Receipt Date: 20220520
  Transmission Date: 20220721
  Serious: No
  Sender: FDA-Public Use
  Company Number: US-NOVARTISTESTPH-NVSC2022US112879

PATIENT
  Sex: Male

DRUGS (1)
  1. ENTRESTO [Suspect]
     Active Substance: SACUBITRIL\VALSARTAN
     Indication: Cardiac failure
     Dosage: 12 MG, BID (12/13 MG)
     Route: 048
     Dates: start: 20220312

REACTIONS (2)
  - Wrong technique in product usage process [Not Recovered/Not Resolved]
  - Prescribed underdose [Unknown]
